FAERS Safety Report 24576817 (Version 2)
Quarter: 2025Q1

REPORT INFORMATION
  Report Type: Report from Study
  Country: CO (occurrence: CO)
  Receive Date: 20241104
  Receipt Date: 20250211
  Transmission Date: 20250408
  Serious: Yes (Other)
  Sender: GLAXOSMITHKLINE
  Company Number: CO-GLAXOSMITHKLINE-CO2024AMR030717

PATIENT

DRUGS (3)
  1. NIRAPARIB [Suspect]
     Active Substance: NIRAPARIB
     Indication: Ovarian cancer
     Dosage: 300 MG, QD
     Dates: start: 20240228
  2. NIRAPARIB [Suspect]
     Active Substance: NIRAPARIB
     Dosage: 100 MG, QD
  3. NIRAPARIB [Suspect]
     Active Substance: NIRAPARIB
     Dosage: 200 MG, QD

REACTIONS (10)
  - Cataract operation [Recovered/Resolved]
  - Discomfort [Not Recovered/Not Resolved]
  - Dizziness [Recovered/Resolved]
  - Malaise [Not Recovered/Not Resolved]
  - Nausea [Recovered/Resolved]
  - Anaemia [Not Recovered/Not Resolved]
  - Cystitis [Unknown]
  - Tumour marker increased [Not Recovered/Not Resolved]
  - Hypertension [Recovered/Resolved]
  - Incorrect dose administered [Unknown]

NARRATIVE: CASE EVENT DATE: 20240305
